FAERS Safety Report 19492871 (Version 1)
Quarter: 2021Q3

REPORT INFORMATION
  Report Type: Spontaneous
  Country: US (occurrence: US)
  Receive Date: 20210705
  Receipt Date: 20210705
  Transmission Date: 20211014
  Serious: Yes (Other)
  Sender: FDA-Public Use
  Company Number: US-PFIZER INC-2021538909

PATIENT
  Age: 55 Year
  Sex: Female
  Weight: 86.64 kg

DRUGS (7)
  1. SEROQUEL [Concomitant]
     Active Substance: QUETIAPINE FUMARATE
     Dosage: 100 MG, TAKES ONE TABLET AT NIGHT
  2. SYMTUZA [Concomitant]
     Active Substance: COBICISTAT\DARUNAVIR\EMTRICITABINE\TENOFOVIR ALAFENAMIDE
     Dosage: TAKES ONE PILL DAILY BY MOUTH
     Route: 048
  3. ABILIFY [Concomitant]
     Active Substance: ARIPIPRAZOLE
     Indication: BIPOLAR DISORDER
     Dosage: 15 MG, TAKE ONE TABLET BY MOUTH EVERY MORNING
     Route: 048
  4. OXYTIN [Concomitant]
     Indication: HERNIA PAIN
     Dosage: TAKING TWO PILLS A DAY, ONE IN THE MORNING AND ONE AT NIGHT.
  5. METFORMIN [Concomitant]
     Active Substance: METFORMIN HYDROCHLORIDE
     Dosage: UNK
  6. GABAPENTIN. [Suspect]
     Active Substance: GABAPENTIN
     Indication: NEUROPATHY PERIPHERAL
     Dosage: 600 MG, 4X/DAY
  7. CYCLOBENZAPRINE. [Concomitant]
     Active Substance: CYCLOBENZAPRINE
     Indication: MUSCLE SPASMS
     Dosage: USUALLY TAKES TWO A DAY , AS NEEDED

REACTIONS (2)
  - Off label use [Unknown]
  - Blindness [Unknown]
